FAERS Safety Report 7141824-X (Version None)
Quarter: 2010Q4

REPORT INFORMATION
  Report Type: 
  Country: None (occurrence: None)
  Receive Date: 20101207
  Receipt Date: 20101126
  Transmission Date: 20110411
  Serious: Yes (Other)
  Sender: FDA-Public Use
  Company Number: JP-ROCHE-744528

PATIENT
  Age: 55 Year
  Sex: Female
  Weight: 41 kg

DRUGS (11)
  1. AVASTIN [Suspect]
     Indication: LUNG ADENOCARCINOMA METASTATIC
     Dosage: ACTION TAKEN: DISCONTINUED
     Route: 041
     Dates: start: 20100511, end: 20100803
  2. ZOMETA [Suspect]
     Indication: LUNG ADENOCARCINOMA METASTATIC
     Route: 041
     Dates: start: 20100519, end: 20100810
  3. CISPLATIN [Suspect]
     Indication: LUNG ADENOCARCINOMA METASTATIC
     Route: 041
     Dates: start: 20100511, end: 20100713
  4. GEMZAR [Suspect]
     Indication: LUNG ADENOCARCINOMA METASTATIC
     Route: 041
     Dates: start: 20100511, end: 20100518
  5. GEMZAR [Suspect]
     Route: 041
     Dates: start: 20100601, end: 20100713
  6. KYTRIL [Concomitant]
     Dosage: DOSAGE UNCERTAIN
     Route: 042
  7. DECADRON [Concomitant]
     Dosage: DOSAGE UNCERTAIN
     Route: 042
  8. MANNITOL [Concomitant]
     Dosage: DOSAGE UNCERTAIN
     Route: 042
  9. PURSENNID [Concomitant]
     Dosage: DOSAGE UNCERTAIN
     Route: 048
  10. RHYTHMY [Concomitant]
     Dosage: DOSAGE UNCERTAIN
     Route: 048
  11. UNSPECIFIED DRUG [Concomitant]
     Dosage: DOSAGE UNCERTAIN
     Route: 048

REACTIONS (3)
  - BLOOD CREATININE INCREASED [None]
  - PROTEIN URINE [None]
  - TUBULOINTERSTITIAL NEPHRITIS [None]
